FAERS Safety Report 4924461-4 (Version None)
Quarter: 2006Q1

REPORT INFORMATION
  Report Type: 
  Country: None (occurrence: None)
  Receive Date: 20060221
  Receipt Date: 20060207
  Transmission Date: 20060701
  Serious: Yes (Other)
  Sender: FDA-Public Use
  Company Number: 2006011381

PATIENT
  Sex: Female

DRUGS (13)
  1. CELEBREX [Suspect]
     Indication: ARTHRALGIA
     Dosage: ORAL
     Route: 048
  2. CELEBREX [Suspect]
     Indication: ARTHRITIS
     Dosage: ORAL
     Route: 048
  3. CELEBREX [Suspect]
     Indication: OSTEOPOROSIS
     Dosage: ORAL
     Route: 048
  4. BEXTRA [Suspect]
     Indication: ILL-DEFINED DISORDER
     Dates: start: 20040801, end: 20041101
  5. THYROID TAB [Concomitant]
  6. PREVACID [Concomitant]
  7. CLARINEX [Concomitant]
  8. CALCIUM D SAUTER (ASCORBIC ACID, CALCIUM GLUCONATE, CALCIUM LACTATE, C [Concomitant]
  9. GLUCOSAMINE (GLUCOSAMINE) [Concomitant]
  10. ELAVIL [Concomitant]
  11. OCUVITE (ASCORBIC ACID, RETINOL, TOCOPHEROL) [Concomitant]
  12. BION TEARS (DEXTRAN 70, HYPROMELLOSE) [Concomitant]
  13. BILBERRY (MYRTILLUS) [Concomitant]

REACTIONS (7)
  - ARTHRALGIA [None]
  - CARPAL TUNNEL DECOMPRESSION [None]
  - DIFFICULTY IN WALKING [None]
  - HYPOAESTHESIA [None]
  - INSOMNIA [None]
  - PAIN [None]
  - ROTATOR CUFF SYNDROME [None]
